FAERS Safety Report 19423989 (Version 1)
Quarter: 2021Q2

REPORT INFORMATION
  Report Type: Spontaneous
  Country: US (occurrence: US)
  Receive Date: 20210616
  Receipt Date: 20210616
  Transmission Date: 20210717
  Serious: Yes (Other)
  Sender: FDA-Public Use
  Company Number: US-EISAI MEDICAL RESEARCH-EC-2021-094307

PATIENT
  Age: 78 Year
  Sex: Female

DRUGS (1)
  1. LENVIMA [Suspect]
     Active Substance: LENVATINIB
     Indication: HUERTHLE CELL CARCINOMA
     Route: 048
     Dates: start: 201911, end: 2019

REACTIONS (3)
  - Nausea [Recovering/Resolving]
  - Haematochezia [Recovering/Resolving]
  - Post procedural haemorrhage [Recovering/Resolving]

NARRATIVE: CASE EVENT DATE: 2019
